FAERS Safety Report 8290673 (Version 2)
Quarter: 2013Q2

REPORT INFORMATION
  Report Type: Spontaneous
  Country: US (occurrence: None)
  Receive Date: 20111122
  Receipt Date: 20120703
  Transmission Date: 20140414
  Serious: No
  Sender: FDA-Public Use
  Company Number: PHEH2011US00970

PATIENT
  Age: 39 Year
  Sex: Female

DRUGS (1)
  1. GILENYA (FTY) CAPSULE, 0.5MG [Suspect]
     Indication: MULTIPLE SCLEROSIS
     Dosage: 0,5 MG, OQ, ORAL
     Route: 048
     Dates: start: 201106

REACTIONS (3)
  - FATIGUE [None]
  - Chest pain [None]
  - Back pain [None]
